FAERS Safety Report 11695125 (Version 1)
Quarter: 2015Q4

REPORT INFORMATION
  Report Type: Spontaneous
  Country: US (occurrence: US)
  Receive Date: 20151103
  Receipt Date: 20151103
  Transmission Date: 20160304
  Serious: Yes (Other)
  Sender: FDA-Public Use
  Company Number: US-TAKEDA-TPA2011A08502

PATIENT

DRUGS (3)
  1. TRADIENTA [Concomitant]
  2. ACTOS [Suspect]
     Active Substance: PIOGLITAZONE HYDROCHLORIDE
     Indication: TYPE 2 DIABETES MELLITUS
     Dosage: UNK
     Route: 048
     Dates: start: 20090327, end: 20110914
  3. GLUCOTROL [Concomitant]
     Active Substance: GLIPIZIDE
     Dosage: UNK UNK, QD

REACTIONS (2)
  - Bladder cancer [Unknown]
  - Renal failure [Unknown]

NARRATIVE: CASE EVENT DATE: 20091201
